FAERS Safety Report 5766717-1 (Version None)
Quarter: 2008Q2

REPORT INFORMATION
  Report Type: 
  Country: None (occurrence: None)
  Receive Date: 20080609
  Receipt Date: 20080528
  Transmission Date: 20081010
  Serious: Yes (Hospitalization, Disabling)
  Sender: FDA-Public Use
  Company Number: E2020-02837-SPO-US

PATIENT
  Age: 73 Year
  Sex: Female
  Weight: 63.6 kg

DRUGS (4)
  1. ARICEPT [Suspect]
     Indication: DEMENTIA
     Dosage: 10 MG, 1 IN 1 D, ORAL; 1 IN 1 D, ORAL
     Route: 048
     Dates: start: 20070101, end: 20080501
  2. ARICEPT [Suspect]
     Indication: DEMENTIA
     Dosage: 10 MG, 1 IN 1 D, ORAL; 1 IN 1 D, ORAL
     Route: 048
     Dates: start: 20080528
  3. BLOOD PRESSURE MEDICATION (ANTIHYPERTENSIVES) [Concomitant]
  4. LIPITOR [Concomitant]

REACTIONS (2)
  - LEG AMPUTATION [None]
  - THROMBOSIS [None]
